FAERS Safety Report 6255233-9 (Version None)
Quarter: 2009Q3

REPORT INFORMATION
  Report Type: 
  Country: None (occurrence: None)
  Receive Date: 20090702
  Receipt Date: 20090629
  Transmission Date: 20100115
  Serious: Yes (Hospitalization)
  Sender: FDA-Public Use
  Company Number: FR-WYE-G03945009

PATIENT
  Sex: Male

DRUGS (5)
  1. EFFEXOR [Suspect]
     Indication: DEPRESSION
     Route: 048
     Dates: start: 20090410, end: 20090504
  2. SINGULAIR [Concomitant]
     Indication: ASTHMA
     Dosage: UNKNOWN
     Route: 048
     Dates: start: 19940101
  3. PULMICORT-100 [Concomitant]
     Indication: ASTHMA
     Dosage: UNKNOWN
     Dates: start: 19940101
  4. CYMBALTA [Suspect]
     Indication: DEPRESSION
     Route: 048
     Dates: start: 20080401, end: 20090410
  5. ALUMINIUM HYDROXIDE/MAGNESIUM HYDROXIDE [Concomitant]
     Indication: DEPRESSION
     Route: 048
     Dates: start: 20080401, end: 20090410

REACTIONS (3)
  - CONDITION AGGRAVATED [None]
  - RASH ERYTHEMATOUS [None]
  - TOXIC SKIN ERUPTION [None]
